FAERS Safety Report 20008134 (Version 16)
Quarter: 2025Q1

REPORT INFORMATION
  Report Type: Report from Study
  Country: CA (occurrence: CA)
  Receive Date: 20211028
  Receipt Date: 20250313
  Transmission Date: 20250409
  Serious: Yes (Hospitalization, Other)
  Sender: TAKEDA
  Company Number: CA-TAKEDA-2021TUS066043

PATIENT
  Age: 68 Year
  Sex: Female

DRUGS (20)
  1. VEDOLIZUMAB [Suspect]
     Active Substance: VEDOLIZUMAB
     Indication: Crohn^s disease
  2. VEDOLIZUMAB [Suspect]
     Active Substance: VEDOLIZUMAB
     Dosage: 300 MILLIGRAM, Q4WEEKS
     Dates: start: 20210924
  3. VEDOLIZUMAB [Suspect]
     Active Substance: VEDOLIZUMAB
     Dosage: 300 MILLIGRAM, Q4WEEKS
  4. VEDOLIZUMAB [Suspect]
     Active Substance: VEDOLIZUMAB
     Dosage: 300 MILLIGRAM, Q4WEEKS
  5. VEDOLIZUMAB [Suspect]
     Active Substance: VEDOLIZUMAB
     Dosage: 300 MILLIGRAM, Q4WEEKS
  6. VEDOLIZUMAB [Suspect]
     Active Substance: VEDOLIZUMAB
     Dosage: 300 MILLIGRAM, Q4WEEKS
     Dates: start: 20221028
  7. VEDOLIZUMAB [Suspect]
     Active Substance: VEDOLIZUMAB
     Dosage: 300 MILLIGRAM, Q4WEEKS
  8. VEDOLIZUMAB [Suspect]
     Active Substance: VEDOLIZUMAB
     Dosage: 300 MILLIGRAM, Q4WEEKS
  9. VEDOLIZUMAB [Suspect]
     Active Substance: VEDOLIZUMAB
     Dosage: 300 MILLIGRAM, Q4WEEKS
  10. VEDOLIZUMAB [Suspect]
     Active Substance: VEDOLIZUMAB
     Dosage: 300 MILLIGRAM, Q4WEEKS
  11. VEDOLIZUMAB [Suspect]
     Active Substance: VEDOLIZUMAB
     Indication: Crohn^s disease
  12. PANTOPRAZOLE SODIUM [Suspect]
     Active Substance: PANTOPRAZOLE SODIUM
     Indication: Product used for unknown indication
  13. RAMIPRIL [Concomitant]
     Active Substance: RAMIPRIL
  14. ELIQUIS [Concomitant]
     Active Substance: APIXABAN
  15. ENTOCORT [Concomitant]
     Active Substance: BUDESONIDE
  16. QUETIAPINE [Concomitant]
     Active Substance: QUETIAPINE
  17. HYDROMORPHONE [Concomitant]
     Active Substance: HYDROMORPHONE
  18. ADMELOG [Concomitant]
     Active Substance: INSULIN LISPRO
  19. ONDANSETRON [Concomitant]
     Active Substance: ONDANSETRON
  20. HYDROCHLOROTHIAZIDE [Concomitant]
     Active Substance: HYDROCHLOROTHIAZIDE

REACTIONS (15)
  - Device related infection [Recovering/Resolving]
  - Crohn^s disease [Not Recovered/Not Resolved]
  - Oedema peripheral [Recovered/Resolved]
  - Renal failure [Recovered/Resolved]
  - Diffuse large B-cell lymphoma [Not Recovered/Not Resolved]
  - Impaired healing [Not Recovered/Not Resolved]
  - Pain [Unknown]
  - Diverticulitis [Recovering/Resolving]
  - Abdominal distension [Unknown]
  - Postoperative wound infection [Not Recovered/Not Resolved]
  - Haemoglobin decreased [Unknown]
  - Back pain [Recovered/Resolved]
  - Skin ulcer [Not Recovered/Not Resolved]
  - Off label use [Unknown]
  - Poor venous access [Unknown]

NARRATIVE: CASE EVENT DATE: 20210924
